FAERS Safety Report 19958244 (Version 1)
Quarter: 2021Q4

REPORT INFORMATION
  Report Type: Report from Study
  Country: CO (occurrence: CO)
  Receive Date: 20211015
  Receipt Date: 20211015
  Transmission Date: 20220304
  Serious: Yes (Other)
  Sender: FDA-Public Use
  Company Number: CO-NOVARTISPH-NVSC2021CO235044

PATIENT
  Sex: Male
  Weight: 75 kg

DRUGS (2)
  1. LOSARTAN [Suspect]
     Active Substance: LOSARTAN
     Indication: Hypertension
     Dosage: 50 MG, Q12H, STARTED 7 YEARS AGO
     Route: 048
  2. INSULIN NOS [Concomitant]
     Active Substance: INSULIN NOS
     Indication: Diabetes mellitus
     Dosage: 14 U, QD, STARTED 3 YEARS AGO
     Route: 058

REACTIONS (3)
  - Diabetic retinopathy [Unknown]
  - Disease progression [Unknown]
  - Inappropriate schedule of product administration [Unknown]
